FAERS Safety Report 10159750 (Version 1)
Quarter: 2014Q2

REPORT INFORMATION
  Report Type: Spontaneous
  Country: GB (occurrence: None)
  Receive Date: 20140506
  Receipt Date: 20140506
  Transmission Date: 20141212
  Serious: Yes (Hospitalization)
  Sender: FDA-Public Use
  Company Number: FK201401553

PATIENT
  Age: 58 Year
  Sex: Male

DRUGS (14)
  1. FUROSEMIDE [Suspect]
     Indication: OEDEMA PERIPHERAL
     Route: 048
     Dates: start: 20140410, end: 20140414
  2. RAMIPRIL [Suspect]
     Indication: HYPERTENSION
     Route: 048
     Dates: end: 20140414
  3. RAMIPRIL [Suspect]
     Indication: DIABETES MELLITUS
     Route: 048
     Dates: end: 20140414
  4. OMEPRAZOLE (OMEPRAZOLE) [Concomitant]
  5. PROPRANOLOL (PROPRANOLOL) [Concomitant]
  6. VITAMIN B COMPLEX STRONG 9VITAMIN B COMPLEX) [Concomitant]
  7. AMLODIPINE (AMLODIPINE) [Concomitant]
  8. ASPIRIN (ACETYLSALICYLIC ACID) [Concomitant]
  9. ATORVASTATIN (ATORVASTATIN) [Concomitant]
  10. CODEINE (CODEINE) [Concomitant]
  11. FERROUS SULPHATE (FERROUS SULFATE) [Concomitant]
  12. HUMULIN (HUMAN MIXTARD) [Concomitant]
  13. LEVOTHYROXINE (LEVOTYROXINE) [Concomitant]
  14. METFORMIN (METFORMIN) [Concomitant]

REACTIONS (7)
  - Cough [None]
  - Dyspnoea [None]
  - Swelling face [None]
  - Haemoptysis [None]
  - Lip swelling [None]
  - Swollen tongue [None]
  - Eyelid oedema [None]
